FAERS Safety Report 21372059 (Version 1)
Quarter: 2022Q3

REPORT INFORMATION
  Report Type: Report from Study
  Country: EG (occurrence: EG)
  Receive Date: 20220923
  Receipt Date: 20220923
  Transmission Date: 20221027
  Serious: Yes (Other)
  Sender: FDA-Public Use
  Company Number: EG-NOVARTISPH-NVSC2022EG211636

PATIENT
  Age: 9 Year
  Sex: Female

DRUGS (7)
  1. OMNITROPE [Suspect]
     Active Substance: SOMATROPIN
     Indication: Growth hormone deficiency
     Dosage: 0.6 MG, QD
     Route: 058
     Dates: start: 20220601, end: 20220913
  2. FERROGLOBIN [Concomitant]
     Indication: Anaemia
     Dosage: UNK, QD (DOSE: 5 CM)
     Route: 048
     Dates: start: 202202
  3. FERROGLOBIN [Concomitant]
     Indication: Memory impairment
  4. FERROGLOBIN [Concomitant]
     Indication: Vitamin D deficiency
  5. HALORANGE [Concomitant]
     Indication: Anaemia
     Dosage: UNK, QD (DOSE: 5 CM)
     Route: 048
     Dates: start: 202202
  6. HALORANGE [Concomitant]
     Indication: Memory impairment
  7. HALORANGE [Concomitant]
     Indication: Vitamin D deficiency

REACTIONS (5)
  - Lip discolouration [Not Recovered/Not Resolved]
  - Pallor [Not Recovered/Not Resolved]
  - Lip erythema [Not Recovered/Not Resolved]
  - Dark circles under eyes [Not Recovered/Not Resolved]
  - Product availability issue [Not Recovered/Not Resolved]

NARRATIVE: CASE EVENT DATE: 20220913
